FAERS Safety Report 7409271-0 (Version None)
Quarter: 2011Q2

REPORT INFORMATION
  Report Type: 
  Country: None (occurrence: None)
  Receive Date: 20110412
  Receipt Date: 20110406
  Transmission Date: 20111010
  Serious: Yes (Other)
  Sender: FDA-Public Use
  Company Number: A0921671A

PATIENT
  Age: 14 Year
  Sex: Female

DRUGS (3)
  1. ADVAIR DISKUS 100/50 [Suspect]
     Indication: ASTHMA
     Dosage: 1PUFF TWICE PER DAY
     Route: 055
     Dates: start: 20110301, end: 20110301
  2. SINGULAIR [Concomitant]
  3. FLOVENT [Concomitant]

REACTIONS (1)
  - ANGIOEDEMA [None]
